FAERS Safety Report 24570272 (Version 1)
Quarter: 2024Q4

REPORT INFORMATION
  Report Type: Spontaneous
  Country: US (occurrence: US)
  Receive Date: 20241031
  Receipt Date: 20241031
  Transmission Date: 20250115
  Serious: Yes (Life-Threatening, Hospitalization, Other)
  Sender: NOVO NORDISK
  Company Number: US-NOVOPROD-1307615

PATIENT
  Age: 63 Year
  Sex: Male

DRUGS (4)
  1. OZEMPIC [Suspect]
     Active Substance: SEMAGLUTIDE
     Indication: Type 2 diabetes mellitus
     Dosage: 1MG
     Route: 058
     Dates: start: 202312
  2. OZEMPIC [Suspect]
     Active Substance: SEMAGLUTIDE
     Dosage: 0.25 MG
     Route: 058
     Dates: start: 202406
  3. OZEMPIC [Suspect]
     Active Substance: SEMAGLUTIDE
     Dosage: 1MG
     Route: 058
     Dates: start: 202404, end: 202406
  4. OZEMPIC [Suspect]
     Active Substance: SEMAGLUTIDE
     Dosage: 2MG
     Route: 058
     Dates: end: 202404

REACTIONS (3)
  - Myocardial infarction [Recovered/Resolved]
  - Off label use [Unknown]
  - Wrong technique in product usage process [Unknown]

NARRATIVE: CASE EVENT DATE: 20231201
